FAERS Safety Report 19302297 (Version 2)
Quarter: 2021Q3

REPORT INFORMATION
  Report Type: Spontaneous
  Country: AT (occurrence: AT)
  Receive Date: 20210525
  Receipt Date: 20210714
  Transmission Date: 20211014
  Serious: Yes (Hospitalization, Other)
  Sender: FDA-Public Use
  Company Number: AT-ELI_LILLY_AND_COMPANY-AT202105005139

PATIENT
  Age: 51 Year
  Sex: Female
  Weight: 100 kg

DRUGS (1)
  1. TALTZ [Suspect]
     Active Substance: IXEKIZUMAB
     Indication: PSORIATIC ARTHROPATHY
     Dosage: 80 MG, UNKNOWN
     Route: 058
     Dates: start: 201910

REACTIONS (11)
  - Vaginal haemorrhage [Recovered/Resolved]
  - Crohn^s disease [Unknown]
  - C-reactive protein increased [Unknown]
  - Genital ulceration [Unknown]
  - Abdominal pain [Unknown]
  - Perineal ulceration [Unknown]
  - Vaginal infection [Unknown]
  - Haemoglobin decreased [Unknown]
  - Mucous stools [Unknown]
  - Large intestinal haemorrhage [Unknown]
  - Abnormal faeces [Unknown]

NARRATIVE: CASE EVENT DATE: 202103
